FAERS Safety Report 4290972-0 (Version None)
Quarter: 2004Q1

REPORT INFORMATION
  Report Type: 
  Country: None (occurrence: None)
  Receive Date: 20040211
  Receipt Date: 20031021
  Transmission Date: 20041129
  Serious: No
  Sender: FDA-Public Use
  Company Number: US-GLAXOSMITHKLINE-A0430955A

PATIENT
  Age: 54 Year
  Sex: Female

DRUGS (8)
  1. PAXIL [Suspect]
     Dosage: 10MG TWICE PER DAY
     Route: 048
  2. NEXIUM [Concomitant]
  3. MOBIC [Concomitant]
  4. NORVASC [Concomitant]
  5. PREMARIN [Concomitant]
  6. ZELNORM [Concomitant]
  7. HYDROXYCHLOROQUINE [Concomitant]
  8. CLONAZEPAM [Concomitant]

REACTIONS (4)
  - CHEST PAIN [None]
  - DISTURBANCE IN SOCIAL BEHAVIOUR [None]
  - GASTROOESOPHAGEAL REFLUX DISEASE [None]
  - TENSION [None]
